FAERS Safety Report 16445953 (Version 1)
Quarter: 2019Q2

REPORT INFORMATION
  Report Type: Spontaneous
  Country: US (occurrence: US)
  Receive Date: 20190618
  Receipt Date: 20190618
  Transmission Date: 20190711
  Serious: Yes (Other)
  Sender: FDA-Public Use
  Company Number: US-UNIQUE PHARMACEUTICAL LABORATORIES-2018RIS00620

PATIENT
  Age: 42 Year
  Sex: Female
  Weight: 77.1 kg

DRUGS (3)
  1. CITALOPRAM [Concomitant]
     Active Substance: CITALOPRAM HYDROBROMIDE
     Dosage: UNK
     Dates: start: 2013
  2. DICLOFENAC SODIUM DELAYED-RELEASE TABLETS USP 75MG [Suspect]
     Active Substance: DICLOFENAC SODIUM
     Indication: PAIN
     Dosage: 75 MG, 1X/MONTH
     Route: 048
     Dates: start: 20181116
  3. DICLOFENAC SODIUM DELAYED-RELEASE TABLETS USP 75MG [Suspect]
     Active Substance: DICLOFENAC SODIUM
     Indication: GLUTEN SENSITIVITY
     Dosage: 75 MG, 1X/MONTH
     Route: 048
     Dates: start: 201704

REACTIONS (7)
  - Swollen tongue [Recovered/Resolved]
  - Anaphylactic reaction [Recovered/Resolved]
  - Drug ineffective [Unknown]
  - Tremor [Recovered/Resolved]
  - Pruritus [Recovered/Resolved]
  - Urticaria [Recovered/Resolved]
  - Product use in unapproved indication [Recovered/Resolved]

NARRATIVE: CASE EVENT DATE: 20181214
